FAERS Safety Report 15371245 (Version 1)
Quarter: 2018Q3

REPORT INFORMATION
  Report Type: Spontaneous
  Country: US (occurrence: US)
  Receive Date: 20180905
  Receipt Date: 20180905
  Transmission Date: 20181010
  Serious: Yes (Other)
  Sender: FDA-Public Use
  Company Number: None

PATIENT
  Age: 26 Year
  Sex: Female
  Weight: 49.95 kg

DRUGS (6)
  1. MONTELUKAST SODIUM. [Suspect]
     Active Substance: MONTELUKAST SODIUM
  2. BACLOFEN. [Concomitant]
     Active Substance: BACLOFEN
  3. FEXOFENADINE [Concomitant]
     Active Substance: FEXOFENADINE\FEXOFENADINE HYDROCHLORIDE
  4. DASETTA 1/35 [Concomitant]
     Active Substance: ETHINYL ESTRADIOL\NORETHINDRONE
  5. RANITIDINE. [Concomitant]
     Active Substance: RANITIDINE
  6. PROPRANOLOL HCL 20MG [Suspect]
     Active Substance: PROPRANOLOL HYDROCHLORIDE
     Indication: TACHYCARDIA
     Dosage: ?          QUANTITY:90 DF DOSAGE FORM;?
     Route: 048
     Dates: start: 20180822, end: 20180902

REACTIONS (4)
  - Rash generalised [None]
  - Pruritus [None]
  - Rash [None]
  - Drug hypersensitivity [None]

NARRATIVE: CASE EVENT DATE: 20180901
